FAERS Safety Report 6574251-4 (Version None)
Quarter: 2010Q1

REPORT INFORMATION
  Report Type: 
  Country: None (occurrence: None)
  Receive Date: 20100201
  Receipt Date: 20100121
  Transmission Date: 20100710
  Serious: Yes (Hospitalization)
  Sender: FDA-Public Use
  Company Number: PAR_03261_2009

PATIENT
  Age: 56 Year
  Sex: Male
  Weight: 76 kg

DRUGS (8)
  1. IBUPROFEN [Suspect]
     Indication: BONE PAIN
     Dosage: 400 MG  (400 MG BID ORAL)
     Route: 048
     Dates: start: 20090101, end: 20090911
  2. ASPIRIN [Suspect]
     Indication: ISCHAEMIC HEART DISEASE PROPHYLAXIS
     Dosage: (100 MG QD ORAL), (100 MG QD ORAL)
     Route: 048
     Dates: start: 19980101, end: 20090911
  3. ASPIRIN [Suspect]
     Indication: ISCHAEMIC HEART DISEASE PROPHYLAXIS
     Dosage: (100 MG QD ORAL), (100 MG QD ORAL)
     Route: 048
     Dates: start: 20090916, end: 20090916
  4. BENALAPRIL [Concomitant]
  5. HYDROCHLOROTHIAZIDE [Concomitant]
  6. PANTOZOL /01263202/ [Concomitant]
  7. INEGY [Concomitant]
  8. NEBILET [Concomitant]

REACTIONS (6)
  - ABDOMINAL PAIN [None]
  - ANXIETY [None]
  - COLD SWEAT [None]
  - COLITIS ISCHAEMIC [None]
  - FAECAL VOLUME INCREASED [None]
  - HAEMATOCHEZIA [None]
